FAERS Safety Report 16011056 (Version 1)
Quarter: 2019Q1

REPORT INFORMATION
  Report Type: Report from Study
  Country: None (occurrence: AU)
  Receive Date: 20190227
  Receipt Date: 20190227
  Transmission Date: 20190418
  Serious: Yes (Hospitalization)
  Sender: FDA-Public Use
  Company Number: AU-ABBVIE-18K-008-2459630-00

PATIENT
  Age: 63 Year
  Sex: Male

DRUGS (2)
  1. HUMIRA [Suspect]
     Active Substance: ADALIMUMAB
     Indication: PYODERMA GANGRENOSUM
     Dosage: 4 X 40MG LOADING DOSE
     Route: 058
     Dates: start: 20180808, end: 20180808
  2. HUMIRA [Suspect]
     Active Substance: ADALIMUMAB
     Route: 058
     Dates: start: 2018

REACTIONS (5)
  - Bronchopulmonary aspergillosis [Unknown]
  - Cytomegalovirus infection [Unknown]
  - Skin ulcer [Not Recovered/Not Resolved]
  - Off label use [Unknown]
  - Immunosuppression [Unknown]

NARRATIVE: CASE EVENT DATE: 20180808
